FAERS Safety Report 18723972 (Version 2)
Quarter: 2021Q1

REPORT INFORMATION
  Report Type: Spontaneous
  Country: JP (occurrence: JP)
  Receive Date: 20210111
  Receipt Date: 20210129
  Transmission Date: 20210419
  Serious: Yes (Hospitalization, Other)
  Sender: FDA-Public Use
  Company Number: JP-TEVA-2021-JP-1867325

PATIENT
  Age: 63 Year
  Sex: Male

DRUGS (15)
  1. OXALIPLATIN. [Suspect]
     Active Substance: OXALIPLATIN
     Dosage: PART OF CAPOX REGIMEN; RECEIVED ONE COURSE
     Route: 065
  2. GIMERACIL/OTERACIL/TEGAFUR [Suspect]
     Active Substance: GIMERACIL\OTERACIL\TEGAFUR
     Indication: METASTASES TO PERITONEUM
  3. OXALIPLATIN. [Suspect]
     Active Substance: OXALIPLATIN
     Indication: METASTASES TO PERITONEUM
     Dosage: PART OF CAPOX+BEVACIZUMAB THERAPY; RECEIVED 8 COURSES
     Route: 065
  4. BEVACIZUMAB. [Suspect]
     Active Substance: BEVACIZUMAB
     Indication: COLON CANCER
     Dosage: PART OF CAPOX+BEVACIZUMAB THERAPY; RECEIVED 7 COURSES
     Route: 065
  5. CAPECITABINE. [Suspect]
     Active Substance: CAPECITABINE
     Dosage: PART OF CAPOX REGIMEN; RECEIVED ONE COURSE
     Route: 065
  6. BEVACIZUMAB. [Suspect]
     Active Substance: BEVACIZUMAB
     Indication: METASTASES TO PERITONEUM
     Dosage: PART OF CAPECITABINE+BEVACIZUMAB THERAPY; SCHEDULED TO RECEIVE 3 COURSES
     Route: 065
  7. IRINOTECAN [Suspect]
     Active Substance: IRINOTECAN
     Indication: COLON CANCER
     Dosage: PART OF IRIS+BEVACIZUMAB THERAPY
     Route: 065
     Dates: start: 201810
  8. BEVACIZUMAB. [Suspect]
     Active Substance: BEVACIZUMAB
     Dosage: PART OF IRIS +BEVACIZUMAB
     Route: 065
     Dates: start: 201810
  9. IRINOTECAN [Suspect]
     Active Substance: IRINOTECAN
     Indication: METASTASES TO PERITONEUM
  10. BEVACIZUMAB. [Suspect]
     Active Substance: BEVACIZUMAB
     Dosage: PART OF CAPOX+BEVACIZUMAB THERAPY; RECEIVED 8 COURSES
     Route: 065
  11. GIMERACIL/OTERACIL/TEGAFUR [Suspect]
     Active Substance: GIMERACIL\OTERACIL\TEGAFUR
     Indication: COLON CANCER
     Dosage: PART OF IRIS+BEVACIZUMAB THERAPY
     Route: 065
     Dates: start: 201810
  12. OXALIPLATIN. [Suspect]
     Active Substance: OXALIPLATIN
     Indication: COLON CANCER
     Dosage: PART OF CAPOX+BEVACIZUMAB THERAPY; RECEIVED 7 COURSES
     Route: 065
  13. CAPECITABINE. [Suspect]
     Active Substance: CAPECITABINE
     Indication: COLON CANCER
     Dosage: PART OF CAPOX+BEVACIZUMAB THERAPY; RECEIVED 7 COURSES
     Route: 065
  14. CAPECITABINE. [Suspect]
     Active Substance: CAPECITABINE
     Indication: METASTASES TO PERITONEUM
     Dosage: PART OF CAPECITABINE+BEVACIZUMAB THERAPY; SCHEDULED TO RECEIVE 3 COURSES
     Route: 065
  15. CAPECITABINE. [Suspect]
     Active Substance: CAPECITABINE
     Dosage: PART OF CAPOX+BEVACIZUMAB THERAPY; RECEIVED 8 COURSES
     Route: 065

REACTIONS (2)
  - Acute respiratory failure [Recovering/Resolving]
  - Pneumocystis jirovecii pneumonia [Recovering/Resolving]
